FAERS Safety Report 7639658-2 (Version None)
Quarter: 2011Q3

REPORT INFORMATION
  Report Type: 
  Country: None (occurrence: None)
  Receive Date: 20110727
  Receipt Date: 20110724
  Transmission Date: 20111222
  Serious: Yes (Hospitalization, Other)
  Sender: FDA-Public Use
  Company Number: TW-PFIZER INC-2011167654

PATIENT
  Age: 63 Year
  Sex: Male

DRUGS (4)
  1. FLUOXETINE [Concomitant]
     Dosage: 20MG - 40MG HS
  2. TRIHEXYPHENIDYL [Concomitant]
     Dosage: 2 MG, 3X/DAY
  3. GEODON [Suspect]
     Dosage: 120-180 MG TID RIGHT AFTER MEAL
  4. ESTAZOLAM [Concomitant]
     Dosage: 2 MG, 1X/DAY HS

REACTIONS (16)
  - MUSCULAR WEAKNESS [None]
  - ELECTROCARDIOGRAM QT PROLONGED [None]
  - HYPOAESTHESIA [None]
  - HYPERTENSION [None]
  - EXTRAPYRAMIDAL DISORDER [None]
  - INSOMNIA [None]
  - DELUSIONAL DISORDER, MIXED TYPE [None]
  - COGNITIVE DISORDER [None]
  - SUICIDAL IDEATION [None]
  - AKATHISIA [None]
  - METABOLIC SYNDROME [None]
  - STRESS [None]
  - DEPRESSION [None]
  - OSTEOARTHRITIS [None]
  - VIOLENCE-RELATED SYMPTOM [None]
  - VENOUS OCCLUSION [None]
